FAERS Safety Report 23833752 (Version 1)
Quarter: 2024Q2

REPORT INFORMATION
  Report Type: Spontaneous
  Country: DE (occurrence: DE)
  Receive Date: 20240509
  Receipt Date: 20240509
  Transmission Date: 20240716
  Serious: Yes (Life-Threatening)
  Sender: FDA-Public Use
  Company Number: DE-DENTSPLY-2024SCDP000129

PATIENT
  Sex: Male

DRUGS (1)
  1. XYLOCAINE [Suspect]
     Active Substance: LIDOCAINE HYDROCHLORIDE\LIDOCAINE HYDROCHLORIDE ANHYDROUS
     Indication: Product used for unknown indication
     Dosage: UNK DOSE TOTAL XYLOCAINE SOLUTION FOR INJECTION (ADMINISTERED 1X)
     Route: 040
     Dates: start: 202401

REACTIONS (4)
  - Paraesthesia [None]
  - Tachycardia [None]
  - Pain [None]
  - Blood pressure decreased [None]

NARRATIVE: CASE EVENT DATE: 20240101
